FAERS Safety Report 25588070 (Version 1)
Quarter: 2025Q3

REPORT INFORMATION
  Report Type: Spontaneous
  Country: EU (occurrence: EU)
  Receive Date: 20250722
  Receipt Date: 20250722
  Transmission Date: 20251020
  Serious: Yes (Hospitalization, Other)
  Sender: BAXTER
  Company Number: None

PATIENT
  Age: 24 Year
  Sex: Male

DRUGS (1)
  1. ACETAMINOPHEN [Suspect]
     Active Substance: ACETAMINOPHEN
     Route: 065
     Dates: start: 20250629, end: 20250629

REACTIONS (11)
  - Suicide attempt [Unknown]
  - Acute hepatic failure [Unknown]
  - Analgesic drug level increased [Unknown]
  - Toxicity to various agents [Unknown]
  - Flank pain [Unknown]
  - International normalised ratio increased [Unknown]
  - Intentional overdose [Unknown]
  - Abdominal pain [Unknown]
  - Muscle spasms [Unknown]
  - Nausea [Unknown]
  - Vomiting [Unknown]

NARRATIVE: CASE EVENT DATE: 20250629
